FAERS Safety Report 17612569 (Version 5)
Quarter: 2020Q3

REPORT INFORMATION
  Report Type: Spontaneous
  Country: US (occurrence: US)
  Receive Date: 20200401
  Receipt Date: 20200722
  Transmission Date: 20201102
  Serious: No
  Sender: FDA-Public Use
  Company Number: US-BIOMARINAP-US-2020-129028

PATIENT
  Age: 4 Month
  Sex: Male

DRUGS (1)
  1. ALDURAZYME [Suspect]
     Active Substance: LARONIDASE
     Indication: MUCOPOLYSACCHARIDOSIS I
     Dosage: 6 MILLIGRAM, QW
     Route: 042
     Dates: start: 20200210

REACTIONS (6)
  - Disease progression [Not Recovered/Not Resolved]
  - Muscular weakness [Not Recovered/Not Resolved]
  - Ear disorder [Recovering/Resolving]
  - Oropharyngeal pain [Not Recovered/Not Resolved]
  - Tonsillectomy [Recovering/Resolving]
  - Poor venous access [Recovered/Resolved]

NARRATIVE: CASE EVENT DATE: 2020
